FAERS Safety Report 9716875 (Version 2)
Quarter: 2013Q4

REPORT INFORMATION
  Report Type: Report from Study
  Country: BR (occurrence: BR)
  Receive Date: 20131127
  Receipt Date: 20131213
  Transmission Date: 20140711
  Serious: Yes (Death, Hospitalization)
  Sender: FDA-Public Use
  Company Number: BR-BAYER-2013-141918

PATIENT
  Age: 68 Year
  Sex: Male

DRUGS (4)
  1. NEXAVAR [Suspect]
     Indication: HEPATIC CANCER
     Dosage: 2 TABLETS IN THE MORNING AND 2 TABLETS AT NIGHT
     Route: 048
     Dates: start: 2013, end: 20131031
  2. INSULIN [Concomitant]
     Indication: DIABETES MELLITUS
  3. PROPANOLOL [Concomitant]
     Indication: HYPERTENSION
  4. ATENOLOL [Concomitant]
     Indication: HYPERTENSION

REACTIONS (9)
  - Haematemesis [Fatal]
  - Haematochezia [Fatal]
  - Hypoxia [Fatal]
  - Pneumonia aspiration [Fatal]
  - Gastrointestinal haemorrhage [Fatal]
  - Cough [None]
  - Abdominal distension [None]
  - Abdominal rigidity [None]
  - Eating disorder [None]
